FAERS Safety Report 21968588 (Version 1)
Quarter: 2023Q1

REPORT INFORMATION
  Report Type: Spontaneous
  Country: US (occurrence: US)
  Receive Date: 20230208
  Receipt Date: 20230208
  Transmission Date: 20230417
  Serious: Yes (Other)
  Sender: FDA-Public Use
  Company Number: US-JNJFOC-20230163170

PATIENT
  Age: 45 Year
  Sex: Male

DRUGS (4)
  1. SPRAVATO [Suspect]
     Active Substance: ESKETAMINE
     Indication: Depression
     Dosage: ^56 MG, 2 TOTAL DOSES^
     Dates: start: 20211115, end: 20211118
  2. SPRAVATO [Suspect]
     Active Substance: ESKETAMINE
     Dosage: ^84 MG, 1 TOTAL DOSE^
     Dates: start: 20211122, end: 20211122
  3. SPRAVATO [Suspect]
     Active Substance: ESKETAMINE
     Dosage: ^56 MG, 1 TOTAL DOSE^
     Dates: start: 20211124, end: 20211124
  4. SPRAVATO [Suspect]
     Active Substance: ESKETAMINE
     Dosage: ^84 MG, 58 TOTAL DOSES^
     Dates: start: 20211129, end: 20230126

REACTIONS (14)
  - Bacterial colitis [Unknown]
  - Umbilical haemorrhage [Unknown]
  - Rash [Unknown]
  - Psychotic disorder [Unknown]
  - Flank pain [Unknown]
  - Abnormal behaviour [Unknown]
  - Surgery [Unknown]
  - Memory impairment [Unknown]
  - Anger [Unknown]
  - Catatonia [Unknown]
  - Feeling abnormal [Unknown]
  - Panic attack [Unknown]
  - Vision blurred [Unknown]
  - Tremor [Unknown]

NARRATIVE: CASE EVENT DATE: 20220101
